FAERS Safety Report 18677360 (Version 1)
Quarter: 2020Q4

REPORT INFORMATION
  Report Type: Spontaneous
  Country: GB (occurrence: GB)
  Receive Date: 20201229
  Receipt Date: 20201229
  Transmission Date: 20210114
  Serious: Yes (Other)
  Sender: FDA-Public Use
  Company Number: GB-MYLANLABS-2020M1104484

PATIENT
  Sex: Female

DRUGS (2)
  1. SIRDUPLA [Suspect]
     Active Substance: FLUTICASONE PROPIONATE\SALMETEROL XINAFOATE
     Indication: ASTHMA
     Dosage: UNK
  2. FLIXONASE [Suspect]
     Active Substance: FLUTICASONE PROPIONATE
     Indication: SEASONAL ALLERGY
     Dosage: 50 ?G, 150 DOSE
     Route: 055

REACTIONS (6)
  - Drug ineffective [Unknown]
  - Aphonia [Unknown]
  - Hernia [Unknown]
  - Intestinal obstruction [Unknown]
  - Product complaint [Unknown]
  - Rhinorrhoea [Recovering/Resolving]
